FAERS Safety Report 14364740 (Version 1)
Quarter: 2018Q1

REPORT INFORMATION
  Report Type: Spontaneous
  Country: US (occurrence: US)
  Receive Date: 20180107
  Receipt Date: 20180107
  Transmission Date: 20180509
  Serious: Yes (Disabling)
  Sender: FDA-Public Use
  Company Number: None

PATIENT
  Age: 26 Year
  Sex: Female
  Weight: 103.5 kg

DRUGS (2)
  1. XARELTO [Suspect]
     Active Substance: RIVAROXABAN
     Indication: PULMONARY EMBOLISM
     Dosage: ?          QUANTITY:1 TABLET(S);?
     Route: 048
     Dates: start: 20170809, end: 20180103
  2. XANAX [Concomitant]
     Active Substance: ALPRAZOLAM

REACTIONS (8)
  - Weight increased [None]
  - Arthralgia [None]
  - Hypertension [None]
  - Fluid retention [None]
  - Alopecia [None]
  - Blood cholesterol increased [None]
  - Anxiety [None]
  - Emotional disorder [None]

NARRATIVE: CASE EVENT DATE: 20170809
